FAERS Safety Report 20813816 (Version 1)
Quarter: 2022Q2

REPORT INFORMATION
  Report Type: Spontaneous
  Country: US (occurrence: None)
  Receive Date: 20220510
  Receipt Date: 20220510
  Transmission Date: 20220721
  Serious: Yes (Other)
  Sender: FDA-Public Use
  Company Number: None

PATIENT
  Age: 58 Year
  Sex: Female
  Weight: 81.1 kg

DRUGS (1)
  1. VANCOMYCIN [Suspect]
     Active Substance: VANCOMYCIN
     Indication: Staphylococcal infection
     Dosage: FREQUENCY : TWICE A DAY;?
     Route: 041
     Dates: start: 20220416, end: 20220424

REACTIONS (2)
  - Rash pruritic [None]
  - Infusion related reaction [None]

NARRATIVE: CASE EVENT DATE: 20220424
